FAERS Safety Report 9204809 (Version 3)
Quarter: 2013Q3

REPORT INFORMATION
  Report Type: Spontaneous
  Country: JP (occurrence: JP)
  Receive Date: 20130402
  Receipt Date: 20130723
  Transmission Date: 20140515
  Serious: Yes (Other)
  Sender: FDA-Public Use
  Company Number: JP-GLAXOSMITHKLINE-B0866147A

PATIENT
  Age: 30 Year
  Sex: Male

DRUGS (5)
  1. LAMICTAL [Suspect]
     Indication: BIPOLAR DISORDER
     Dosage: 25MG ALTERNATE DAYS
     Route: 048
     Dates: start: 20121204, end: 20121224
  2. LAMICTAL [Suspect]
     Indication: BIPOLAR DISORDER
     Dosage: 25MG PER DAY
     Route: 048
     Dates: start: 20121225, end: 20130128
  3. LAMICTAL [Suspect]
     Indication: BIPOLAR DISORDER
     Route: 048
     Dates: start: 20130129, end: 20130205
  4. RESLIN [Concomitant]
     Route: 048
  5. FLUNITRAZEPAM [Concomitant]
     Route: 048

REACTIONS (8)
  - Eczema [Recovered/Resolved]
  - Abnormal sensation in eye [Recovered/Resolved]
  - Ocular hyperaemia [Recovered/Resolved]
  - Lacrimation decreased [Recovered/Resolved]
  - Conjunctival degeneration [Recovered/Resolved]
  - Dry eye [Recovered/Resolved]
  - Conjunctivitis allergic [Recovered/Resolved]
  - Rash [Recovered/Resolved]
